FAERS Safety Report 4346196-1 (Version None)
Quarter: 2004Q1

REPORT INFORMATION
  Report Type: 
  Country: None (occurrence: None)
  Receive Date: 20040325
  Receipt Date: 20031202
  Transmission Date: 20041129
  Serious: No
  Sender: FDA-Public Use
  Company Number: USA031253764

PATIENT
  Age: 68 Year
  Sex: Female

DRUGS (6)
  1. FORTEO [Suspect]
     Indication: OSTEOPOROSIS
     Dosage: 20 UG/DAY
     Dates: start: 20031125
  2. SYNTHROID [Concomitant]
  3. FOLIC ACID [Concomitant]
  4. VITAMIN E [Concomitant]
  5. GLUCOSAMINE [Concomitant]
  6. CELEBREX [Concomitant]

REACTIONS (2)
  - INJECTION SITE ERYTHEMA [None]
  - INJECTION SITE HAEMORRHAGE [None]
